FAERS Safety Report 24986259 (Version 1)
Quarter: 2025Q1

REPORT INFORMATION
  Report Type: Report from Study
  Country: US (occurrence: US)
  Receive Date: 20250219
  Receipt Date: 20250219
  Transmission Date: 20250408
  Serious: Yes (Death)
  Sender: BAYER HEALTHCARE PHARMACEUTICALS INC.
  Company Number: US-BAYER-2025A020859

PATIENT
  Sex: Female

DRUGS (35)
  1. STIVARGA [Suspect]
     Active Substance: REGORAFENIB MONOHYDRATE
     Indication: Colorectal cancer metastatic
     Dosage: 160 MG, QD (3 WEEKS ON, THEN 1 WEEK OFF)
     Route: 048
     Dates: start: 202408
  2. ARIPIPRAZOLE [Concomitant]
     Active Substance: ARIPIPRAZOLE
  3. BUPROPION [Concomitant]
     Active Substance: BUPROPION
  4. BUSPIRONE [Concomitant]
     Active Substance: BUSPIRONE HYDROCHLORIDE
  5. CEPHALEXIN [Concomitant]
     Active Substance: CEPHALEXIN
  6. COMPAZINE [Concomitant]
     Active Substance: PROCHLORPERAZINE MALEATE
  7. CRESTOR [Concomitant]
     Active Substance: ROSUVASTATIN CALCIUM
  8. DIAZEPAM [Concomitant]
     Active Substance: DIAZEPAM
  9. DIPHENOXYLATE [Concomitant]
     Active Substance: DIPHENOXYLATE
  10. ATROPINE [Concomitant]
     Active Substance: ATROPINE
  11. DOXYCYCLINE HYCLATE [Concomitant]
     Active Substance: DOXYCYCLINE HYCLATE
  12. ELIQUIS [Concomitant]
     Active Substance: APIXABAN
  13. FEXOFENADINE [Concomitant]
     Active Substance: FEXOFENADINE HYDROCHLORIDE
  14. FUROSEMIDE [Concomitant]
     Active Substance: FUROSEMIDE
  15. GABAPENTIN [Concomitant]
     Active Substance: GABAPENTIN
  16. LAMOTRIGINE [Concomitant]
     Active Substance: LAMOTRIGINE
  17. PRILOCAINE [Concomitant]
     Active Substance: PRILOCAINE
  18. LIDOCAINE [Concomitant]
     Active Substance: LIDOCAINE
  19. LOPERAMIDE [Concomitant]
     Active Substance: LOPERAMIDE
  20. MAGNESIUM [Concomitant]
     Active Substance: MAGNESIUM
  21. MAGNESIUM OXIDE [Concomitant]
     Active Substance: MAGNESIUM OXIDE
  22. METHOCARBAMOL [Concomitant]
     Active Substance: METHOCARBAMOL
  23. ONDANSETRON [Concomitant]
     Active Substance: ONDANSETRON
  24. OXYCODONE [Concomitant]
     Active Substance: OXYCODONE
  25. ACETAMINOPHEN [Concomitant]
     Active Substance: ACETAMINOPHEN
  26. PROCHLORPERAZINE [Concomitant]
     Active Substance: PROCHLORPERAZINE
  27. QUESTRAN [Concomitant]
     Active Substance: CHOLESTYRAMINE
  28. ROSUVASTATIN [Concomitant]
     Active Substance: ROSUVASTATIN
  29. OMEPRAZOLE [Concomitant]
     Active Substance: OMEPRAZOLE
  30. SPIRONOLACTONE [Concomitant]
     Active Substance: SPIRONOLACTONE
  31. SUCRALFATE [Concomitant]
     Active Substance: SUCRALFATE
  32. TOLTERODINE TARTRATE [Concomitant]
     Active Substance: TOLTERODINE TARTRATE
  33. TRAZODONE [Concomitant]
     Active Substance: TRAZODONE HYDROCHLORIDE
  34. TRIAMCINOLONE [Concomitant]
     Active Substance: TRIAMCINOLONE
  35. ZOFRAN [Concomitant]
     Active Substance: ONDANSETRON HYDROCHLORIDE

REACTIONS (1)
  - Death [Fatal]
